FAERS Safety Report 13397026 (Version 2)
Quarter: 2017Q2

REPORT INFORMATION
  Report Type: Spontaneous
  Country: US (occurrence: US)
  Receive Date: 20170403
  Receipt Date: 20170629
  Transmission Date: 20170830
  Serious: No
  Sender: FDA-Public Use
  Company Number: US-JNJFOC-20170319741

PATIENT
  Sex: Female
  Weight: 65.77 kg

DRUGS (2)
  1. SYNTHROID [Concomitant]
     Active Substance: LEVOTHYROXINE SODIUM
     Indication: PRODUCT USED FOR UNKNOWN INDICATION
     Dosage: WAS ON THE DRUG SINCE 2 MONTHS OF AGE TILL 5TH GRADE
     Route: 065
  2. PROPULSID [Suspect]
     Active Substance: CISAPRIDE
     Indication: GASTROOESOPHAGEAL REFLUX DISEASE
     Dosage: WAS ON THE DRUG SINCE 2 MONTHS OF AGE TILL 5TH GRADE
     Route: 048

REACTIONS (2)
  - Product availability issue [Unknown]
  - Drug dose omission [Unknown]
